FAERS Safety Report 14294403 (Version 1)
Quarter: 2017Q4

REPORT INFORMATION
  Report Type: Report from Study
  Country: DE (occurrence: DE)
  Receive Date: 20171218
  Receipt Date: 20171218
  Transmission Date: 20180321
  Serious: Yes (Death, Other)
  Sender: FDA-Public Use
  Company Number: DE-BEH-2017085646

PATIENT
  Age: 89 Year
  Sex: Male
  Weight: 62 kg

DRUGS (8)
  1. ASA [Concomitant]
     Active Substance: ASPIRIN
     Dosage: 100 MG, OD (1-0-0)
     Route: 065
  2. PRIVIGEN [Suspect]
     Active Substance: HUMAN IMMUNOGLOBULIN G
     Dosage: 10 G, TOT
     Route: 042
     Dates: start: 20170828, end: 20170828
  3. PRIVIGEN [Suspect]
     Active Substance: HUMAN IMMUNOGLOBULIN G
     Indication: SECONDARY IMMUNODEFICIENCY
     Dosage: 10 G, TOT
     Route: 042
     Dates: start: 20170627, end: 20170627
  4. AMITRIPTYLLIN [Concomitant]
     Dosage: 3 DF, TID
     Route: 065
  5. PRIVIGEN [Suspect]
     Active Substance: HUMAN IMMUNOGLOBULIN G
     Dosage: 10 G, TOT
     Route: 042
     Dates: start: 20170801, end: 20170801
  6. LYRICA [Concomitant]
     Active Substance: PREGABALIN
     Dosage: 75 MG, OD (0-0-1)
     Route: 065
  7. LYRICA [Concomitant]
     Active Substance: PREGABALIN
     Dosage: 50 MG, BID (1-1-0)
     Route: 065
  8. TILIDINE [Concomitant]
     Active Substance: TILIDINE
     Dosage: 50 MG, TID (1-2-2)
     Route: 065

REACTIONS (8)
  - Cardiac failure [Unknown]
  - Oedema peripheral [Unknown]
  - Respiratory failure [Fatal]
  - Fall [Unknown]
  - Pneumonia [Fatal]
  - Pneumonia [Unknown]
  - Contusion [Unknown]
  - Dyspnoea [Fatal]

NARRATIVE: CASE EVENT DATE: 201707
